FAERS Safety Report 12776287 (Version 1)
Quarter: 2016Q3

REPORT INFORMATION
  Report Type: Spontaneous
  Country: PT (occurrence: PT)
  Receive Date: 20160923
  Receipt Date: 20160923
  Transmission Date: 20161109
  Serious: Yes (Other)
  Sender: FDA-Public Use
  Company Number: PT-TEVA-694070ISR

PATIENT

DRUGS (3)
  1. IBUPROFEN. [Suspect]
     Active Substance: IBUPROFEN
     Indication: PRODUCT USED FOR UNKNOWN INDICATION
     Route: 065
  2. MELOXICAM. [Suspect]
     Active Substance: MELOXICAM
     Route: 065
  3. NIMESULIDE [Concomitant]
     Active Substance: NIMESULIDE

REACTIONS (7)
  - Cough [Unknown]
  - Face oedema [Unknown]
  - Urticaria [Unknown]
  - Periorbital oedema [Unknown]
  - Angioedema [Unknown]
  - Bronchospasm [Unknown]
  - Wheezing [Unknown]
